FAERS Safety Report 15471042 (Version 2)
Quarter: 2025Q3

REPORT INFORMATION
  Report Type: Spontaneous
  Country: EU (occurrence: EU)
  Receive Date: 20181006
  Receipt Date: 20250901
  Transmission Date: 20251021
  Serious: Yes (Other)
  Sender: AUROBINDO
  Company Number: EU-AUROBINDO-AUR-APL-2018-048831

PATIENT
  Age: 65 Year
  Sex: Female

DRUGS (6)
  1. FUROSEMIDE [Suspect]
     Active Substance: FUROSEMIDE
     Indication: Cardiac valve disease
     Route: 065
  2. SPIRONOLACTONE [Suspect]
     Active Substance: SPIRONOLACTONE
     Indication: Cardiac valve disease
     Route: 065
  3. LEVOTHYROXINE [Suspect]
     Active Substance: LEVOTHYROXINE
     Indication: Cardiac valve disease
     Route: 065
  4. LEVOTHYROXINE [Suspect]
     Active Substance: LEVOTHYROXINE
     Route: 065
  5. LEVOTHYROXINE [Suspect]
     Active Substance: LEVOTHYROXINE
     Route: 065
  6. WARFARIN [Suspect]
     Active Substance: WARFARIN
     Indication: Cardiac valve disease
     Route: 065

REACTIONS (7)
  - Conjunctival hyperaemia [Unknown]
  - Xerophthalmia [Unknown]
  - Diplopia [Unknown]
  - Strabismus [Unknown]
  - Endocrine ophthalmopathy [Unknown]
  - Exophthalmos [Unknown]
  - Eye pain [Unknown]
